FAERS Safety Report 5404200-3 (Version None)
Quarter: 2007Q3

REPORT INFORMATION
  Report Type: 
  Country: None (occurrence: None)
  Receive Date: 20070802
  Receipt Date: 20070725
  Transmission Date: 20080115
  Serious: Yes (Hospitalization, Disabling)
  Sender: FDA-Public Use
  Company Number: HQWYE236426JUL07

PATIENT
  Sex: Female
  Weight: 57 kg

DRUGS (12)
  1. MYLOTARG [Suspect]
     Indication: ACUTE MYELOID LEUKAEMIA RECURRENT
     Route: 041
     Dates: start: 20070327, end: 20070327
  2. SOLU-MEDROL [Concomitant]
     Indication: GRAFT VERSUS HOST DISEASE
     Route: 041
     Dates: start: 20070321, end: 20070413
  3. SOLU-MEDROL [Concomitant]
     Route: 041
     Dates: start: 20070321, end: 20070406
  4. SOLU-MEDROL [Concomitant]
     Route: 041
     Dates: start: 20070406, end: 20070408
  5. SOLU-MEDROL [Concomitant]
     Route: 041
     Dates: start: 20070414, end: 20070418
  6. SOLU-MEDROL [Concomitant]
     Route: 041
     Dates: start: 20070419
  7. URSO 250 [Concomitant]
     Indication: GRAFT VERSUS HOST DISEASE
     Route: 048
     Dates: start: 20070314, end: 20070408
  8. MAXIPIME [Concomitant]
     Indication: FEBRILE NEUTROPENIA
     Route: 041
     Dates: start: 20070405, end: 20070417
  9. BENAMBAX [Concomitant]
     Indication: PNEUMOCYSTIS JIROVECI PNEUMONIA
     Route: 041
     Dates: start: 20070409, end: 20070411
  10. FUNGUARD [Concomitant]
     Indication: BRONCHOPULMONARY ASPERGILLOSIS
     Route: 041
     Dates: start: 20070412, end: 20070422
  11. POLARAMINE [Concomitant]
     Indication: GRAFT VERSUS HOST DISEASE
     Route: 041
     Dates: start: 20070319, end: 20070413
  12. VENOGLOBULIN [Concomitant]
     Indication: HISTIOCYTOSIS HAEMATOPHAGIC
     Route: 041
     Dates: start: 20070409, end: 20070411

REACTIONS (3)
  - ACUTE RESPIRATORY DISTRESS SYNDROME [None]
  - ANAPHYLACTIC SHOCK [None]
  - PNEUMONIA STAPHYLOCOCCAL [None]
